FAERS Safety Report 15650823 (Version 1)
Quarter: 2018Q4

REPORT INFORMATION
  Report Type: Spontaneous
  Country: US (occurrence: US)
  Receive Date: 20181123
  Receipt Date: 20181123
  Transmission Date: 20190205
  Serious: No
  Sender: FDA-Public Use
  Company Number: US-TEVA-2018-US-976893

PATIENT
  Sex: Male

DRUGS (2)
  1. CLONAZEPAM. [Suspect]
     Active Substance: CLONAZEPAM
     Indication: RESTLESS LEGS SYNDROME
     Route: 065
     Dates: start: 2014
  2. CLONAZEPAM. [Suspect]
     Active Substance: CLONAZEPAM
     Indication: HEREDITARY MOTOR AND SENSORY NEUROPATHY

REACTIONS (4)
  - Insomnia [Unknown]
  - Product substitution issue [Unknown]
  - Feeling abnormal [Unknown]
  - Restless legs syndrome [Unknown]
